FAERS Safety Report 4389925-3 (Version None)
Quarter: 2004Q2

REPORT INFORMATION
  Report Type: 
  Country: None (occurrence: None)
  Receive Date: 20040630
  Receipt Date: 20040614
  Transmission Date: 20050107
  Serious: No
  Sender: FDA-Public Use
  Company Number: 2004AP03227

PATIENT
  Age: 34 Year
  Sex: Female

DRUGS (3)
  1. XYLOCAINE [Suspect]
     Indication: LOCAL ANAESTHESIA
     Dosage: 100 MG SQ
     Route: 058
     Dates: start: 20040611, end: 20040611
  2. METENARIN [Concomitant]
  3. ATONIN-O [Concomitant]

REACTIONS (2)
  - ANAESTHETIC COMPLICATION [None]
  - ANAPHYLACTIC REACTION [None]
